FAERS Safety Report 13240923 (Version 1)
Quarter: 2017Q1

REPORT INFORMATION
  Report Type: Spontaneous
  Country: JP (occurrence: JP)
  Receive Date: 20170216
  Receipt Date: 20170216
  Transmission Date: 20170428
  Serious: Yes (Life-Threatening)
  Sender: FDA-Public Use
  Company Number: JP-TAKEDA-2017TUS003580

PATIENT
  Age: 91 Year
  Sex: Male

DRUGS (4)
  1. OPALMON [Concomitant]
     Active Substance: LIMAPROST
     Indication: BONE CONTUSION
     Dosage: UNK
     Route: 048
  2. MUCOSTA [Concomitant]
     Active Substance: REBAMIPIDE
     Indication: BONE CONTUSION
     Dosage: UNK
     Route: 065
  3. CELECOX [Concomitant]
     Active Substance: CELECOXIB
     Indication: BONE CONTUSION
     Dosage: UNK
     Route: 048
  4. FEBURIC [Suspect]
     Active Substance: FEBUXOSTAT
     Indication: HYPERURICAEMIA
     Dosage: 10 MG, QD
     Route: 048
     Dates: start: 20161202, end: 20161215

REACTIONS (1)
  - Rash generalised [Recovered/Resolved]

NARRATIVE: CASE EVENT DATE: 20161212
